FAERS Safety Report 20934445 (Version 4)
Quarter: 2023Q1

REPORT INFORMATION
  Report Type: Report from Study
  Country: US (occurrence: US)
  Receive Date: 20220608
  Receipt Date: 20230313
  Transmission Date: 20230418
  Serious: Yes (Other)
  Sender: FDA-Public Use
  Company Number: US-PFIZER INC-202200134348

PATIENT
  Sex: Male
  Weight: 120 kg

DRUGS (3)
  1. LYRICA [Suspect]
     Active Substance: PREGABALIN
     Indication: Pain
     Dosage: 5 DF QD (2 CAPSULES EVERY MORNING AND 3 CAPS EVERY EVENING)
     Route: 065
  2. LYRICA [Suspect]
     Active Substance: PREGABALIN
     Indication: Seizure
  3. LYRICA [Suspect]
     Active Substance: PREGABALIN
     Indication: Autonomic neuropathy

REACTIONS (3)
  - Shoulder arthroplasty [Unknown]
  - Neuropathy peripheral [Unknown]
  - Wrong technique in product usage process [Unknown]
